FAERS Safety Report 18586226 (Version 4)
Quarter: 2022Q2

REPORT INFORMATION
  Report Type: Spontaneous
  Country: US (occurrence: US)
  Receive Date: 20201207
  Receipt Date: 20220525
  Transmission Date: 20220721
  Serious: Yes (Other)
  Sender: FDA-Public Use
  Company Number: US-PFIZER INC-2020480066

PATIENT
  Age: 75 Year
  Sex: Female
  Weight: 77.107 kg

DRUGS (3)
  1. IBRANCE [Suspect]
     Active Substance: PALBOCICLIB
     Indication: Breast cancer stage IV
     Dosage: 125 MG, CYCLIC (ONCE A DAY BY MOUTH; ON FOR 21 DAYS AND OFF FOR 7 DAYS)
     Route: 048
     Dates: end: 20201124
  2. IBRANCE [Suspect]
     Active Substance: PALBOCICLIB
     Dosage: 100 MG
     Dates: start: 2020
  3. LETROZOLE [Concomitant]
     Active Substance: LETROZOLE
     Indication: Breast cancer stage IV
     Dosage: UNK
     Dates: start: 201507

REACTIONS (2)
  - Cataract [Unknown]
  - Anaemia [Not Recovered/Not Resolved]
